FAERS Safety Report 16788197 (Version 1)
Quarter: 2019Q3

REPORT INFORMATION
  Report Type: Report from Study
  Country: None (occurrence: CA)
  Receive Date: 20190909
  Receipt Date: 20190909
  Transmission Date: 20191005
  Serious: Yes (Other)
  Sender: FDA-Public Use
  Company Number: CA-ABBVIE-19K-028-2916096-00

PATIENT
  Age: 45 Year
  Sex: Female

DRUGS (1)
  1. HUMIRA [Suspect]
     Active Substance: ADALIMUMAB
     Indication: CROHN^S DISEASE
     Route: 058
     Dates: start: 20170202

REACTIONS (8)
  - Therapeutic product effect incomplete [Not Recovered/Not Resolved]
  - Muscle spasms [Not Recovered/Not Resolved]
  - Obstruction [Not Recovered/Not Resolved]
  - Condition aggravated [Recovered/Resolved]
  - Crohn^s disease [Unknown]
  - Crohn^s disease [Unknown]
  - Rhinitis [Not Recovered/Not Resolved]
  - Nasopharyngitis [Unknown]

NARRATIVE: CASE EVENT DATE: 2019
